FAERS Safety Report 9200473 (Version 1)
Quarter: 2013Q1

REPORT INFORMATION
  Report Type: Report from Study
  Country: US (occurrence: US)
  Receive Date: 20130329
  Receipt Date: 20130329
  Transmission Date: 20140127
  Serious: Yes (Hospitalization)
  Sender: FDA-Public Use
  Company Number: US-ABBOTT-13P-163-1068715-00

PATIENT
  Sex: Female
  Weight: 106.69 kg

DRUGS (6)
  1. HUMIRA [Suspect]
     Indication: ANKYLOSING SPONDYLITIS
     Dates: start: 201208, end: 2013
  2. HUMIRA [Suspect]
     Dates: start: 2013
  3. PREDNISONE [Suspect]
     Indication: ANKYLOSING SPONDYLITIS
     Dosage: TAPERING
  4. METHOTREXATE [Concomitant]
     Indication: ANKYLOSING SPONDYLITIS
     Dates: start: 2013
  5. SULFASALAZINE [Concomitant]
     Indication: IRRITABLE BOWEL SYNDROME
  6. FOLIC ACID [Concomitant]
     Indication: PRODUCT USED FOR UNKNOWN INDICATION

REACTIONS (17)
  - Muscular weakness [Not Recovered/Not Resolved]
  - Muscular weakness [Unknown]
  - Muscular weakness [Unknown]
  - Anaemia [Unknown]
  - Vitamin D decreased [Unknown]
  - Blood calcium decreased [Unknown]
  - Fibromyalgia [Unknown]
  - Steroid withdrawal syndrome [Unknown]
  - Anxiety [Unknown]
  - Pain [Unknown]
  - Myopathy [Unknown]
  - Muscular weakness [Not Recovered/Not Resolved]
  - Pain [Not Recovered/Not Resolved]
  - Constipation [Unknown]
  - Nausea [Unknown]
  - Tremor [Unknown]
  - Headache [Unknown]
